FAERS Safety Report 6696616-2 (Version None)
Quarter: 2010Q2

REPORT INFORMATION
  Report Type: 
  Country: None (occurrence: None)
  Receive Date: 20100426
  Receipt Date: 20100421
  Transmission Date: 20101027
  Serious: Yes (Other)
  Sender: FDA-Public Use
  Company Number: A0856107A

PATIENT
  Age: 70 Year
  Sex: Male

DRUGS (6)
  1. ADVAIR DISKUS 100/50 [Suspect]
     Indication: ASTHMA
     Dosage: 1PUFF TWICE PER DAY
     Route: 055
     Dates: start: 20070101
  2. PLAVIX [Concomitant]
  3. UNSPECIFIED MEDICATION [Concomitant]
  4. PERDIEM [Concomitant]
  5. FIBER [Concomitant]
  6. MIRALAX [Concomitant]

REACTIONS (15)
  - ASTHENIA [None]
  - CHEST PAIN [None]
  - CONVULSION [None]
  - DIPLOPIA [None]
  - DIZZINESS [None]
  - EYE IRRITATION [None]
  - FALL [None]
  - FREQUENT BOWEL MOVEMENTS [None]
  - HEADACHE [None]
  - IMPAIRED DRIVING ABILITY [None]
  - LOSS OF CONSCIOUSNESS [None]
  - NERVOUSNESS [None]
  - PHOTOSENSITIVITY REACTION [None]
  - ROAD TRAFFIC ACCIDENT [None]
  - TEMPERATURE INTOLERANCE [None]
